FAERS Safety Report 9998927 (Version 3)
Quarter: 2014Q2

REPORT INFORMATION
  Report Type: Report from Study
  Country: CA (occurrence: CA)
  Receive Date: 20140312
  Receipt Date: 20140528
  Transmission Date: 20141212
  Serious: Yes (Other)
  Sender: FDA-Public Use
  Company Number: CA-ALEXION PHARMACEUTICALS INC.-A201400378

PATIENT
  Sex: 0

DRUGS (19)
  1. SOLIRIS [Suspect]
     Indication: PAROXYSMAL NOCTURNAL HAEMOGLOBINURIA
     Dosage: 600 MG, QW
     Route: 042
     Dates: start: 20110217, end: 20110309
  2. SOLIRIS [Suspect]
     Dosage: 900 MG, Q2W
     Route: 042
     Dates: start: 20110316
  3. SOLIRIS [Suspect]
     Dosage: 900 MG, Q2W
     Route: 042
     Dates: start: 20140508
  4. PREDNISONE [Concomitant]
     Indication: PAROXYSMAL NOCTURNAL HAEMOGLOBINURIA
     Dosage: 5 MG, QD
     Route: 048
     Dates: start: 200407
  5. PREDNISONE [Concomitant]
     Dosage: 40 MG, QD
     Route: 048
     Dates: start: 201401
  6. ACTONEL [Concomitant]
     Indication: PROPHYLAXIS
     Dosage: 1 TAB, QW
     Route: 048
     Dates: start: 20080207
  7. METFORMIN [Concomitant]
     Indication: DIABETES MELLITUS
     Dosage: 425 MG, QD
     Route: 048
     Dates: start: 20100801
  8. NOVOLIN [Concomitant]
     Indication: DIABETES MELLITUS
     Dosage: 14 DF, QD
     Route: 058
     Dates: start: 20100801
  9. PANTOLOC                           /01263204/ [Concomitant]
     Indication: PROPHYLAXIS
     Dosage: 40 MG, QD
     Route: 048
     Dates: start: 20080201
  10. FOLIC ACID [Concomitant]
     Indication: PAROXYSMAL NOCTURNAL HAEMOGLOBINURIA
     Dosage: 5 MG, QD
     Route: 048
     Dates: start: 20050419
  11. FERROUS SULFATE [Concomitant]
     Indication: SUPPLEMENTATION THERAPY
     Dosage: 300 MG, QD
     Route: 048
     Dates: start: 20050419
  12. CALCITE D [Concomitant]
     Indication: SUPPLEMENTATION THERAPY
     Dosage: 500 MG, QD
     Route: 048
     Dates: start: 20080207
  13. VITAMIN D                          /00107901/ [Concomitant]
     Indication: SUPPLEMENTATION THERAPY
     Dosage: 400 MG, QD
     Route: 048
     Dates: start: 20080207
  14. VOLTAREN                           /00372301/ [Concomitant]
     Indication: TENDONITIS
     Dosage: 1 COAT, PRN
     Route: 061
     Dates: start: 20110801
  15. TYLENOL EXTRA STRENGTH [Concomitant]
     Indication: PAIN
     Dosage: 500 MG, PRN
     Route: 048
     Dates: start: 20130329
  16. AMOXICILLIN [Concomitant]
     Indication: MENINGITIS BACTERIAL
     Dosage: 500 MG, QD
     Route: 065
     Dates: end: 201306
  17. SULFATRIM                          /00086101/ [Concomitant]
     Indication: PROPHYLAXIS
     Dosage: UNK
     Route: 048
     Dates: start: 20130905
  18. NEORAL [Concomitant]
     Indication: IMMUNOSUPPRESSANT DRUG THERAPY
     Dosage: 150 MG, BID
     Route: 048
     Dates: start: 20130825
  19. ARTIFICIAL TEARS DROP [Concomitant]
     Indication: OCULAR HYPERAEMIA
     Dosage: 1 TO 2 DROPS, PRN
     Dates: start: 201402

REACTIONS (4)
  - Platelet count decreased [Not Recovered/Not Resolved]
  - Haemoglobin decreased [Recovered/Resolved]
  - Eye burns [Not Recovered/Not Resolved]
  - Toothache [Not Recovered/Not Resolved]
